FAERS Safety Report 14306693 (Version 1)
Quarter: 2017Q4

REPORT INFORMATION
  Report Type: Spontaneous
  Country: FR (occurrence: FR)
  Receive Date: 20171220
  Receipt Date: 20171220
  Transmission Date: 20180321
  Serious: Yes (Disabling)
  Sender: FDA-Public Use
  Company Number: FR-MERCK KGAA-2037448

PATIENT
  Age: 58 Year
  Sex: Female

DRUGS (2)
  1. NOVORAPID [Concomitant]
     Active Substance: INSULIN ASPART
  2. NOVOTHYROX [Suspect]
     Active Substance: LEVOTHYROXINE SODIUM
     Indication: PRODUCT USED FOR UNKNOWN INDICATION
     Dates: start: 20170609

REACTIONS (20)
  - Tendon pain [None]
  - Fear [None]
  - Crying [None]
  - Amnesia [None]
  - Fungal infection [None]
  - Anger [None]
  - Gait disturbance [Recovering/Resolving]
  - Libido decreased [None]
  - Balance disorder [None]
  - Procedural pain [None]
  - Headache [Recovering/Resolving]
  - Tremor [Recovering/Resolving]
  - Arthralgia [None]
  - Myalgia [None]
  - Abdominal pain upper [None]
  - Vertigo [Recovering/Resolving]
  - Anxiety [None]
  - Depression [None]
  - Nausea [Recovering/Resolving]
  - Loss of personal independence in daily activities [None]

NARRATIVE: CASE EVENT DATE: 2017
